FAERS Safety Report 25565092 (Version 1)
Quarter: 2025Q3

REPORT INFORMATION
  Report Type: Spontaneous
  Country: IN (occurrence: IN)
  Receive Date: 20250716
  Receipt Date: 20250716
  Transmission Date: 20251020
  Serious: Yes (Death, Other)
  Sender: RANBAXY
  Company Number: IN-SUN PHARMACEUTICAL INDUSTRIES LTD-2025R1-516962

PATIENT
  Age: 13 Year
  Sex: Male

DRUGS (2)
  1. IMATINIB [Suspect]
     Active Substance: IMATINIB
     Indication: Philadelphia positive acute lymphocytic leukaemia
     Route: 065
  2. PONATINIB [Suspect]
     Active Substance: PONATINIB
     Indication: Philadelphia positive chronic myeloid leukaemia
     Route: 065

REACTIONS (4)
  - Blast crisis in myelogenous leukaemia [Fatal]
  - Treatment noncompliance [Fatal]
  - Neoplasm progression [Fatal]
  - Drug resistance mutation [Fatal]
